FAERS Safety Report 16129462 (Version 2)
Quarter: 2019Q2

REPORT INFORMATION
  Report Type: Spontaneous
  Country: JP (occurrence: JP)
  Receive Date: 20190328
  Receipt Date: 20190403
  Transmission Date: 20190711
  Serious: Yes (Other)
  Sender: FDA-Public Use
  Company Number: JP-JNJFOC-20190338066

PATIENT
  Age: 86 Year
  Sex: Female

DRUGS (12)
  1. XARELTO [Suspect]
     Active Substance: RIVAROXABAN
     Indication: THROMBOSIS PROPHYLAXIS
     Route: 048
  2. RUEFRIEN [Concomitant]
     Active Substance: GLUTAMINE\SODIUM GUALENATE
     Route: 065
  3. AMLODIPINE [Concomitant]
     Active Substance: AMLODIPINE BESYLATE
     Route: 065
  4. DONEPEZIL HYDROCHLORIDE. [Concomitant]
     Active Substance: DONEPEZIL HYDROCHLORIDE
     Route: 065
  5. CAMOSTAT MESILATE [Concomitant]
     Active Substance: CAMOSTAT MESYLATE
     Route: 065
  6. BROTIZOLAM [Concomitant]
     Active Substance: BROTIZOLAM
     Route: 065
  7. XARELTO [Suspect]
     Active Substance: RIVAROXABAN
     Indication: ATRIAL FIBRILLATION
     Route: 048
  8. THYRADIN [Concomitant]
     Active Substance: LEVOTHYROXINE
     Route: 065
  9. ASCATE [Concomitant]
     Route: 065
  10. SENNA ALEXANDRINA EXTRACT [Concomitant]
     Route: 065
  11. AZOSEMIDE [Concomitant]
     Active Substance: AZOSEMIDE
     Route: 065
  12. TAKECAB [Concomitant]
     Active Substance: VONOPRAZAN FUMURATE
     Route: 065

REACTIONS (1)
  - Cerebral infarction [Recovering/Resolving]

NARRATIVE: CASE EVENT DATE: 20190323
